FAERS Safety Report 25185229 (Version 2)
Quarter: 2025Q2

REPORT INFORMATION
  Report Type: Spontaneous
  Country: US (occurrence: US)
  Receive Date: 20250410
  Receipt Date: 20250429
  Transmission Date: 20250716
  Serious: Yes (Other)
  Sender: TEIKOKU
  Company Number: US-TPU-TPU-2025-00145

PATIENT
  Sex: Female

DRUGS (2)
  1. LIDOCAINE PATCH [Suspect]
     Active Substance: LIDOCAINE
     Indication: Back pain
     Dates: start: 2008
  2. TRAMADOL [Concomitant]
     Active Substance: TRAMADOL

REACTIONS (2)
  - Lung neoplasm malignant [Not Recovered/Not Resolved]
  - Product dose omission issue [Unknown]
